FAERS Safety Report 17798375 (Version 1)
Quarter: 2020Q2

REPORT INFORMATION
  Report Type: Spontaneous
  Country: FR (occurrence: FR)
  Receive Date: 20200518
  Receipt Date: 20200518
  Transmission Date: 20200714
  Serious: Yes (Other)
  Sender: FDA-Public Use
  Company Number: FR-JNJFOC-20200512265

PATIENT
  Age: 14 Year
  Sex: Female
  Weight: 50 kg

DRUGS (11)
  1. ATARAX [Concomitant]
     Active Substance: HYDROXYZINE HYDROCHLORIDE
     Indication: ANXIETY
     Dosage: 1 DF
     Route: 048
     Dates: start: 20200327, end: 20200406
  2. XARELTO [Suspect]
     Active Substance: RIVAROXABAN
     Indication: DEEP VEIN THROMBOSIS
     Dosage: 20 MG, QD
     Route: 048
     Dates: start: 20200401, end: 20200408
  3. ESOMEPRAZOLE. [Concomitant]
     Active Substance: ESOMEPRAZOLE MAGNESIUM
     Dosage: 20 MG, QD
     Route: 048
     Dates: start: 20200401, end: 20200409
  4. LEVOFLOXACINE ARROW [Suspect]
     Active Substance: LEVOFLOXACIN
     Indication: SEPSIS
     Dosage: 1000 MG, QD
     Route: 041
     Dates: start: 20200303, end: 20200402
  5. CEFAZOLINE [Concomitant]
     Active Substance: CEFAZOLIN SODIUM
     Indication: SEPSIS
     Dosage: 5 G, QD
     Route: 041
     Dates: start: 20200226
  6. PANTOPRAZOLE [Concomitant]
     Active Substance: PANTOPRAZOLE
     Dosage: 40 MG, QD
     Route: 041
     Dates: start: 20200228, end: 20200401
  7. ACTISKENAN [Suspect]
     Active Substance: MORPHINE SULFATE
     Indication: PAIN
     Dosage: 1 DF
     Route: 048
     Dates: start: 20200330, end: 20200410
  8. LEVOTHYROX [Concomitant]
     Active Substance: LEVOTHYROXINE
     Dosage: 1 DF, QD
     Route: 048
     Dates: start: 20200327
  9. LEVOFLOXACINE ARROW [Suspect]
     Active Substance: LEVOFLOXACIN
     Dosage: 2 DF, QD
     Route: 048
     Dates: start: 20200402, end: 20200408
  10. SKENAN [Suspect]
     Active Substance: MORPHINE SULFATE
     Indication: PAIN
     Dosage: 2 DF, QD
     Route: 048
     Dates: start: 20200330, end: 20200410
  11. PARACETAMOL [Concomitant]
     Active Substance: ACETAMINOPHEN
     Dosage: 1 DF
     Route: 048
     Dates: start: 20200228

REACTIONS (3)
  - Depressed level of consciousness [Recovered/Resolved]
  - Hallucination [Recovered/Resolved]
  - Confusional state [Recovered/Resolved]

NARRATIVE: CASE EVENT DATE: 20200404
